FAERS Safety Report 6142556-7 (Version None)
Quarter: 2009Q2

REPORT INFORMATION
  Report Type: 
  Country: None (occurrence: None)
  Receive Date: 20090403
  Receipt Date: 20090323
  Transmission Date: 20091009
  Serious: Yes (Hospitalization, Other)
  Sender: FDA-Public Use
  Company Number: GB-JNJFOC-20090302143

PATIENT
  Age: 67 Year
  Sex: Female
  Weight: 83 kg

DRUGS (12)
  1. REMICADE [Suspect]
     Route: 042
  2. REMICADE [Suspect]
     Indication: RHEUMATOID ARTHRITIS
     Route: 042
  3. METHOTREXATE [Concomitant]
  4. PREDNISOLONE [Concomitant]
  5. BECLOMETHASONE DIPROPIONATE [Concomitant]
  6. CODEINE PHOSPHATE [Concomitant]
  7. ACETAMINOPHEN WITH PROPOXYPHENE HCL TAB [Concomitant]
  8. FRUSEMIDE [Concomitant]
  9. LANSOPRAZOLE [Concomitant]
  10. LOSARTAN POTASSIUM [Concomitant]
  11. RELIFLEX [Concomitant]
  12. SALBUTAMOL [Concomitant]

REACTIONS (5)
  - CHOLECYSTECTOMY [None]
  - JOINT EFFUSION [None]
  - POST PROCEDURAL PULMONARY EMBOLISM [None]
  - SUBDIAPHRAGMATIC ABSCESS [None]
  - VENOUS THROMBOSIS LIMB [None]
